FAERS Safety Report 13968816 (Version 1)
Quarter: 2017Q3

REPORT INFORMATION
  Report Type: Spontaneous
  Country: US (occurrence: US)
  Receive Date: 20170914
  Receipt Date: 20170914
  Transmission Date: 20171128
  Serious: No
  Sender: FDA-Public Use
  Company Number: US-UPSHER-SMITH LABORATORIES, INC.-17000031

PATIENT
  Age: 76 Year
  Sex: Female

DRUGS (15)
  1. NORCO [Suspect]
     Active Substance: ACETAMINOPHEN\HYDROCODONE BITARTRATE
     Dosage: 7.5/325, BID
     Route: 048
     Dates: start: 20161216, end: 20161216
  2. TOLTERODINE TARTRATE. [Concomitant]
     Active Substance: TOLTERODINE TARTRATE
     Indication: RENAL DISORDER
     Dosage: 4 MG, QD
  3. POTASSIUM [Concomitant]
     Active Substance: POTASSIUM
     Indication: DIURETIC THERAPY
     Dosage: 10 MG, QD
  4. BACLOFEN. [Suspect]
     Active Substance: BACLOFEN
     Indication: MUSCLE SPASMS
     Dosage: 10 MG, TID
     Route: 048
     Dates: start: 1996, end: 20161213
  5. CIPRO [Concomitant]
     Active Substance: CIPROFLOXACIN HYDROCHLORIDE
     Indication: OSTEOMYELITIS
     Dosage: 500 MG, QD PRN
  6. PROBIOTIC [Concomitant]
     Active Substance: PROBIOTICS NOS
     Dosage: UNK
  7. BACLOFEN. [Suspect]
     Active Substance: BACLOFEN
     Dosage: 10 MG, BID
     Route: 048
     Dates: start: 20161216, end: 20161216
  8. METOPROLOL. [Concomitant]
     Active Substance: METOPROLOL
     Indication: HYPERTENSION
     Dosage: 50 MG, TID
  9. LASIX [Concomitant]
     Active Substance: FUROSEMIDE
     Indication: FLUID RETENTION
     Dosage: 40 MG, QD
  10. BACLOFEN. [Suspect]
     Active Substance: BACLOFEN
     Dosage: 5 MG, TID
     Route: 048
     Dates: start: 20161218, end: 20161225
  11. ALEVE [Concomitant]
     Active Substance: NAPROXEN SODIUM
     Indication: PAIN
     Dosage: UNK
     Dates: start: 20161218
  12. BACLOFEN. [Suspect]
     Active Substance: BACLOFEN
     Dosage: 10 MG, BID
     Route: 048
     Dates: start: 20170105, end: 20170106
  13. ZOCOR [Concomitant]
     Active Substance: SIMVASTATIN
     Indication: BLOOD CHOLESTEROL INCREASED
     Dosage: 40 MG, QD
  14. NORCO [Suspect]
     Active Substance: ACETAMINOPHEN\HYDROCODONE BITARTRATE
     Indication: PAIN
     Dosage: 7.5/325, PRN
     Route: 048
     Dates: end: 20161213
  15. PRILOSEC [Concomitant]
     Active Substance: OMEPRAZOLE MAGNESIUM
     Indication: DYSPEPSIA
     Dosage: UNK UNK, QD

REACTIONS (13)
  - Vomiting [None]
  - Muscular weakness [None]
  - Blood pressure increased [None]
  - Lethargy [None]
  - Restlessness [None]
  - Confusional state [None]
  - Fall [None]
  - Mydriasis [None]
  - Somnolence [None]
  - Disorientation [None]
  - Incontinence [None]
  - Decreased appetite [None]
  - Overdose [None]

NARRATIVE: CASE EVENT DATE: 1996
